FAERS Safety Report 8273992-0 (Version None)
Quarter: 2012Q2

REPORT INFORMATION
  Report Type: 
  Country: None (occurrence: None)
  Receive Date: 20120411
  Receipt Date: 20120403
  Transmission Date: 20120825
  Serious: Yes (Hospitalization, Other)
  Sender: FDA-Public Use
  Company Number: US-JNJFOC-20120312997

PATIENT
  Sex: Male
  Weight: 81.65 kg

DRUGS (14)
  1. ANCEF [Concomitant]
     Dates: start: 20120221, end: 20120222
  2. GLUCOSAMINE [Concomitant]
  3. OMEPRAZOLE [Concomitant]
  4. MAGNESIUM [Concomitant]
  5. ZINC SULFATE [Concomitant]
  6. HYDROCODONE BITARTRATE [Concomitant]
     Indication: PAIN
  7. MORPHINE [Concomitant]
  8. ONDANSETRON [Concomitant]
  9. XARELTO [Suspect]
     Indication: THROMBOSIS PROPHYLAXIS
     Route: 048
     Dates: start: 20120222, end: 20120304
  10. COLACE [Concomitant]
  11. CALCIUM CARBONATE [Concomitant]
  12. XARELTO [Suspect]
     Indication: JOINT ARTHROPLASTY
     Route: 048
     Dates: start: 20120222, end: 20120304
  13. LOSARTAN POTASSIUM [Concomitant]
  14. SENNA [Concomitant]

REACTIONS (2)
  - HAEMATOMA [None]
  - ECCHYMOSIS [None]
